FAERS Safety Report 6551548-5 (Version None)
Quarter: 2010Q1

REPORT INFORMATION
  Report Type: 
  Country: None (occurrence: None)
  Receive Date: 20100126
  Receipt Date: 20100120
  Transmission Date: 20100710
  Serious: Yes (Life-Threatening, Hospitalization)
  Sender: FDA-Public Use
  Company Number: PHHY2010FR03111

PATIENT
  Sex: Female

DRUGS (6)
  1. AREDIA [Suspect]
     Indication: OSTEOPOROSIS
     Dosage: 30 MG, UNK
     Dates: start: 20091014
  2. KARDEGIC [Concomitant]
     Dosage: 75 MG, UNK
  3. ESOMEPRAZOLE [Concomitant]
     Dosage: 20 MG, QD
  4. SOTALOL HYDROCHLORIDE [Concomitant]
     Indication: CARDIAC FAILURE
     Dosage: 40 MG, BID
  5. PARACETAMOL [Concomitant]
     Indication: PAIN
     Dosage: 4 G DAILY
  6. KALEORID [Concomitant]
     Dosage: 600 MG, UNK
     Dates: start: 20091023

REACTIONS (12)
  - ATRIAL TACHYCARDIA [None]
  - BRONCHIAL OBSTRUCTION [None]
  - CARDIAC FAILURE [None]
  - CREPITATIONS [None]
  - DYSPNOEA [None]
  - HYPERCAPNIA [None]
  - HYPOCALCAEMIA [None]
  - LOSS OF CONSCIOUSNESS [None]
  - MALAISE [None]
  - OEDEMA PERIPHERAL [None]
  - PULMONARY OEDEMA [None]
  - RALES [None]
